FAERS Safety Report 7684006-5 (Version None)
Quarter: 2011Q3

REPORT INFORMATION
  Report Type: 
  Country: None (occurrence: None)
  Receive Date: 20110815
  Receipt Date: 20110809
  Transmission Date: 20111222
  Serious: Yes (Other)
  Sender: FDA-Public Use
  Company Number: BR-PFIZER INC-2011156728

PATIENT
  Sex: Male

DRUGS (8)
  1. METOCLOPRAMIDE HYDROCHLORIDE [Concomitant]
     Dosage: UNK
     Route: 042
     Dates: start: 20110101
  2. DEXTROSE [Concomitant]
     Dosage: UNK
     Route: 042
     Dates: start: 20110101
  3. TRAMADOL HYDROCHLORIDE [Concomitant]
     Dosage: UNK
     Route: 042
     Dates: start: 20110101
  4. BEXTRA [Suspect]
     Indication: PAIN
     Dosage: UNK
     Route: 042
     Dates: start: 20110101, end: 20110101
  5. OMEPRAZOLE [Concomitant]
     Dosage: UNK
     Route: 042
     Dates: start: 20110101
  6. BEXTRA [Suspect]
     Indication: INFLAMMATION
  7. CEFAZOLIN SODIUM [Concomitant]
     Dosage: UNK
     Route: 042
     Dates: start: 20110101
  8. DIPYRONE [Concomitant]
     Dosage: UNK
     Route: 042
     Dates: start: 20110101

REACTIONS (3)
  - ANAPHYLACTIC REACTION [None]
  - DYSPNOEA [None]
  - LARYNGEAL OEDEMA [None]
